FAERS Safety Report 7413775-4 (Version None)
Quarter: 2011Q2

REPORT INFORMATION
  Report Type: 
  Country: None (occurrence: None)
  Receive Date: 20110413
  Receipt Date: 20110411
  Transmission Date: 20111010
  Serious: Yes (Other)
  Sender: FDA-Public Use
  Company Number: IT-ABBOTT-11P-083-0718081-00

PATIENT
  Sex: Male

DRUGS (5)
  1. DEPAKENE [Suspect]
     Indication: EPILEPSY
     Route: 048
     Dates: start: 19850101, end: 20110403
  2. FINASTERIDE [Concomitant]
     Indication: PROSTATITIS
  3. MELATONIN [Concomitant]
     Indication: PRODUCT USED FOR UNKNOWN INDICATION
  4. PEPTAZOL [Concomitant]
     Indication: GASTRITIS
  5. DEPAKENE [Suspect]
     Route: 048
     Dates: start: 20110404

REACTIONS (3)
  - PARAESTHESIA [None]
  - WEIGHT INCREASED [None]
  - SENSORY LOSS [None]
